FAERS Safety Report 18105537 (Version 1)
Quarter: 2020Q3

REPORT INFORMATION
  Report Type: Spontaneous
  Country: FR (occurrence: FR)
  Receive Date: 20200804
  Receipt Date: 20200804
  Transmission Date: 20201103
  Serious: Yes (Other)
  Sender: FDA-Public Use
  Company Number: FR-SUN PHARMACEUTICAL INDUSTRIES LTD-2020RR-255630

PATIENT
  Age: 72 Year
  Sex: Female
  Weight: 60 kg

DRUGS (8)
  1. LAMOTRIGINE. [Concomitant]
     Active Substance: LAMOTRIGINE
     Indication: DEPRESSION
     Dosage: 25 MILLIGRAM, DAILY
     Route: 048
     Dates: start: 2016
  2. BRINTELLIX [Concomitant]
     Active Substance: VORTIOXETINE HYDROBROMIDE
     Indication: DEPRESSION
     Dosage: 1 DOSAGE FORM, DAILY
     Route: 048
     Dates: start: 2020
  3. LORMETAZEPAM [Concomitant]
     Active Substance: LORMETAZEPAM
     Indication: DEPRESSION
     Dosage: 2 MILLIGRAM, DAILY
     Route: 048
  4. QUETIAPINE. [Suspect]
     Active Substance: QUETIAPINE
     Indication: DEPRESSION
     Dosage: 50 MILLIGRAM, DAILY
     Route: 048
  5. LORAZEPAM. [Concomitant]
     Active Substance: LORAZEPAM
     Indication: DEPRESSION
     Dosage: 3.75 MILLIGRAM, DAILY
     Route: 048
  6. MACROGOL 4000 (STEARATE DE) [Concomitant]
     Indication: PROPHYLAXIS
     Dosage: 40 GRAM, DAILY
     Route: 048
  7. MIRTAZAPINE. [Interacting]
     Active Substance: MIRTAZAPINE
     Indication: DEPRESSION
     Dosage: 45 MILLIGRAM, DAILY
     Route: 048
     Dates: start: 2020
  8. CLOMIPRAMINE (CHLORHYDRATE DE) [Interacting]
     Active Substance: CLOMIPRAMINE HYDROCHLORIDE
     Indication: DEPRESSION
     Dosage: 150 MILLIGRAM, DAILY
     Route: 048

REACTIONS (1)
  - Urinary retention [Recovered/Resolved]

NARRATIVE: CASE EVENT DATE: 20200611
